FAERS Safety Report 11029292 (Version 1)
Quarter: 2015Q2

REPORT INFORMATION
  Report Type: Spontaneous
  Country: US (occurrence: US)
  Receive Date: 20150415
  Receipt Date: 20150415
  Transmission Date: 20150821
  Serious: Yes (Hospitalization, Other)
  Sender: FDA-Public Use
  Company Number: US-ROCHE-1564210

PATIENT
  Age: 5 Decade
  Sex: Female

DRUGS (2)
  1. TORISEL [Concomitant]
     Active Substance: TEMSIROLIMUS
     Indication: RENAL CELL CARCINOMA
  2. AVASTIN [Suspect]
     Active Substance: BEVACIZUMAB
     Indication: RENAL CELL CARCINOMA
     Route: 065

REACTIONS (2)
  - Neurological symptom [Unknown]
  - Seizure [Unknown]
